FAERS Safety Report 23065440 (Version 1)
Quarter: 2023Q4

REPORT INFORMATION
  Report Type: Report from Study
  Country: US (occurrence: US)
  Receive Date: 20231013
  Receipt Date: 20231013
  Transmission Date: 20240109
  Serious: Yes (Hospitalization, Other)
  Sender: FDA-Public Use
  Company Number: US-BoehringerIngelheim-2022-BI-160506

PATIENT
  Age: 88 Year
  Sex: Male

DRUGS (2)
  1. OFEV [Suspect]
     Active Substance: NINTEDANIB
     Indication: Idiopathic pulmonary fibrosis
     Dosage: 105095,103705, 105560
     Route: 048
     Dates: start: 20220307
  2. OFEV [Suspect]
     Active Substance: NINTEDANIB
     Dates: start: 20230303

REACTIONS (17)
  - Pneumonia viral [Unknown]
  - Oedema peripheral [Unknown]
  - Pulmonary oedema [Unknown]
  - Urinary tract infection [Unknown]
  - Septic shock [Unknown]
  - Fall [Unknown]
  - Rash [Unknown]
  - Pruritus [Unknown]
  - Weight decreased [Unknown]
  - Intentional product use issue [Unknown]
  - Pancreatic enzymes decreased [Unknown]
  - Diarrhoea [Not Recovered/Not Resolved]
  - Dyspepsia [Unknown]
  - Eructation [Unknown]
  - Gastrooesophageal reflux disease [Unknown]
  - Productive cough [Unknown]
  - Faeces soft [Unknown]

NARRATIVE: CASE EVENT DATE: 20220101
